FAERS Safety Report 6063341-0 (Version None)
Quarter: 2009Q1

REPORT INFORMATION
  Report Type: 
  Country: None (occurrence: None)
  Receive Date: 20090203
  Receipt Date: 20090122
  Transmission Date: 20090719
  Serious: Yes (Other)
  Sender: FDA-Public Use
  Company Number: AR-AMGEN-US331253

PATIENT
  Sex: Female
  Weight: 77 kg

DRUGS (4)
  1. ENBREL [Suspect]
     Indication: RHEUMATOID ARTHRITIS
     Route: 058
     Dates: start: 20081101, end: 20081201
  2. LEVOTHYROXINE [Concomitant]
     Indication: THYROID THERAPY
  3. OMEPRAZOLE [Concomitant]
     Indication: PROPHYLAXIS
     Dosage: UNSPECIFIED
  4. METHOTREXATE [Concomitant]
     Indication: RHEUMATOID ARTHRITIS
     Dosage: 1 VIAL, ONCE WEEKLY

REACTIONS (1)
  - TUBERCULIN TEST POSITIVE [None]
